FAERS Safety Report 5866510-5 (Version None)
Quarter: 2008Q3

REPORT INFORMATION
  Report Type: 
  Country: None (occurrence: None)
  Receive Date: 20080902
  Receipt Date: 20080902
  Transmission Date: 20090109
  Serious: Yes (Hospitalization)
  Sender: FDA-Public Use
  Company Number: PHEH1995US03724

PATIENT
  Sex: Male
  Weight: 107.7 kg

DRUGS (10)
  1. SANDIMMUNE [Suspect]
     Dosage: 400MG
     Route: 048
     Dates: start: 19950208
  2. MAGNESIUM OXIDE [Concomitant]
  3. MAGNESIUM OXIDE [Concomitant]
  4. ZANTAC [Concomitant]
  5. SEPTRA DS [Concomitant]
  6. INSULIN - REGULAR (INSULIN) [Concomitant]
  7. INSULIN - NPH (INSULIN) [Concomitant]
  8. MYCELEX [Concomitant]
  9. XANAX [Concomitant]
  10. TYLOX [Concomitant]

REACTIONS (3)
  - BLOOD GLUCOSE INCREASED [None]
  - HEPATITIS NON-A NON-B [None]
  - TRANSPLANT REJECTION [None]
